FAERS Safety Report 5117430-5 (Version None)
Quarter: 2006Q3

REPORT INFORMATION
  Report Type: 
  Country: None (occurrence: None)
  Receive Date: 20060926
  Receipt Date: 20060908
  Transmission Date: 20061208
  Serious: Yes (Disabling)
  Sender: FDA-Public Use
  Company Number: US200609002367

PATIENT
  Age: 51 Year
  Sex: Female

DRUGS (11)
  1. HUMALOG MIX 75/25 [Suspect]
     Indication: DIABETES MELLITUS
     Dosage: 30 UG, 3/D
     Dates: start: 20060906
  2. HUMALOG [Suspect]
     Indication: DIABETES MELLITUS
     Dosage: SEE IMAGE
  3. HUMULIN LENTE (HUMAN INSULIN RDNA ORIGIN) LENTE) VIA [Suspect]
     Indication: DIABETES MELLITUS
  4. HUMULIN N [Suspect]
     Indication: DIABETES MELLITUS
     Dosage: SEE IMAGE
  5. INSULIN (INSULIN) [Concomitant]
  6. LANTUS [Concomitant]
  7. ACTOS [Concomitant]
  8. FENOFIBRATE [Concomitant]
  9. METFORMIN HCL [Concomitant]
  10. ASPIRIN [Concomitant]
  11. LORAZEPAM [Concomitant]

REACTIONS (20)
  - ANXIETY [None]
  - BLOOD CHOLESTEROL INCREASED [None]
  - BLOOD GLUCOSE INCREASED [None]
  - BODY HEIGHT DECREASED [None]
  - CRYING [None]
  - DYSKINESIA [None]
  - EXERCISE LACK OF [None]
  - GAIT DISTURBANCE [None]
  - GLYCOSYLATED HAEMOGLOBIN INCREASED [None]
  - HIGH DENSITY LIPOPROTEIN DECREASED [None]
  - HYPERTENSION [None]
  - INJECTION SITE HAEMORRHAGE [None]
  - LOW DENSITY LIPOPROTEIN INCREASED [None]
  - MUSCLE SPASMS [None]
  - NEURALGIA [None]
  - NEUROPATHY [None]
  - OBESITY [None]
  - OEDEMA PERIPHERAL [None]
  - PHARMACEUTICAL PRODUCT COMPLAINT [None]
  - WRONG TECHNIQUE IN DRUG USAGE PROCESS [None]
